FAERS Safety Report 19766539 (Version 1)
Quarter: 2021Q3

REPORT INFORMATION
  Report Type: Spontaneous
  Country: FR (occurrence: FR)
  Receive Date: 20210831
  Receipt Date: 20210831
  Transmission Date: 20211014
  Serious: Yes (Other)
  Sender: FDA-Public Use
  Company Number: FR-ASTRAZENECA-2021A645427

PATIENT
  Sex: Male

DRUGS (4)
  1. VERAPAMIL HCL [Suspect]
     Active Substance: VERAPAMIL HYDROCHLORIDE
     Indication: OBSTRUCTION GASTRIC
     Route: 065
     Dates: start: 20210610, end: 20210710
  2. LISINOPRIL. [Suspect]
     Active Substance: LISINOPRIL
     Indication: PRODUCT USED FOR UNKNOWN INDICATION
     Route: 065
  3. VERAPAMIL HCL [Suspect]
     Active Substance: VERAPAMIL HYDROCHLORIDE
     Indication: TACHYCARDIA
     Route: 065
     Dates: start: 20210610, end: 20210710
  4. INEXIUM [Suspect]
     Active Substance: ESOMEPRAZOLE
     Indication: PRODUCT USED FOR UNKNOWN INDICATION
     Route: 065

REACTIONS (6)
  - Angina pectoris [Unknown]
  - Muscular weakness [Unknown]
  - Arthralgia [Unknown]
  - Dizziness [Unknown]
  - Vertigo [Unknown]
  - Hypotension [Recovered/Resolved]
